FAERS Safety Report 14220843 (Version 1)
Quarter: 2017Q4

REPORT INFORMATION
  Report Type: Spontaneous
  Country: DE (occurrence: DE)
  Receive Date: 20171124
  Receipt Date: 20171124
  Transmission Date: 20180321
  Serious: Yes (Other)
  Sender: FDA-Public Use
  Company Number: DE-ASTELLAS-2017US048318

PATIENT
  Age: 52 Year
  Sex: Male

DRUGS (5)
  1. METFORMIN [Interacting]
     Active Substance: METFORMIN HYDROCHLORIDE
     Indication: PRODUCT USED FOR UNKNOWN INDICATION
     Route: 065
     Dates: end: 20171105
  2. METFORMIN [Interacting]
     Active Substance: METFORMIN HYDROCHLORIDE
     Route: 065
     Dates: start: 20171116
  3. MIRABEGRON [Suspect]
     Active Substance: MIRABEGRON
     Indication: BLADDER DYSFUNCTION
     Route: 065
     Dates: start: 201710, end: 201711
  4. SPASMEX                            /00376202/ [Interacting]
     Active Substance: TROSPIUM CHLORIDE
     Dosage: UNK, UNKNOWN FREQ.
     Route: 065
     Dates: start: 201711
  5. SPASMEX                            /00376202/ [Interacting]
     Active Substance: TROSPIUM CHLORIDE
     Indication: BLADDER DYSFUNCTION
     Dosage: UNK, UNKNOWN FREQ.
     Route: 065
     Dates: start: 20080707, end: 201710

REACTIONS (5)
  - Blood glucose fluctuation [Recovered/Resolved]
  - Impaired quality of life [Unknown]
  - Intentional product misuse [Unknown]
  - Drug interaction [Unknown]
  - Drug ineffective [Unknown]

NARRATIVE: CASE EVENT DATE: 20171106
